FAERS Safety Report 23230325 (Version 2)
Quarter: 2023Q4

REPORT INFORMATION
  Report Type: Report from Study
  Country: BE (occurrence: BE)
  Receive Date: 20231127
  Receipt Date: 20231208
  Transmission Date: 20240109
  Serious: Yes (Hospitalization)
  Sender: FDA-Public Use
  Company Number: BE-SA-SAC20231123000126

PATIENT
  Age: 52 Year
  Sex: Male
  Weight: 81 kg

DRUGS (8)
  1. ISATUXIMAB [Suspect]
     Active Substance: ISATUXIMAB
     Indication: Plasma cell myeloma
     Dosage: 790 MG (D1 D15)
     Route: 042
     Dates: start: 20231011, end: 20231011
  2. ISATUXIMAB [Suspect]
     Active Substance: ISATUXIMAB
     Dosage: 790 MG (D1 D15)
     Route: 042
     Dates: start: 20231025, end: 20231025
  3. CARFILZOMIB [Suspect]
     Active Substance: CARFILZOMIB
     Indication: Plasma cell myeloma
     Dosage: 88 MG (D1 D8 D15)
     Route: 042
     Dates: start: 20231011, end: 20231011
  4. CARFILZOMIB [Suspect]
     Active Substance: CARFILZOMIB
     Dosage: 88 MG (D1 D8 D15)
     Route: 042
     Dates: start: 20231025, end: 20231025
  5. LENALIDOMIDE [Suspect]
     Active Substance: LENALIDOMIDE
     Indication: Plasma cell myeloma
     Dosage: 10 MG
     Route: 048
     Dates: start: 20231109, end: 20231109
  6. LENALIDOMIDE [Suspect]
     Active Substance: LENALIDOMIDE
     Dosage: 10 MG
     Route: 048
     Dates: start: 20231120, end: 20231120
  7. DEXAMETHASONE [Suspect]
     Active Substance: DEXAMETHASONE
     Indication: Plasma cell myeloma
     Dosage: 40 MG (D1 D8 D15 D22)
     Route: 048
     Dates: start: 20231011, end: 20231011
  8. DEXAMETHASONE [Suspect]
     Active Substance: DEXAMETHASONE
     Dosage: 40 MG (D1 D8 D15 D22)
     Route: 048
     Dates: start: 20231101, end: 20231101

REACTIONS (1)
  - Influenza [Recovering/Resolving]

NARRATIVE: CASE EVENT DATE: 20231120
